FAERS Safety Report 8465314-7 (Version None)
Quarter: 2012Q2

REPORT INFORMATION
  Report Type: 
  Country: None (occurrence: None)
  Receive Date: 20120626
  Receipt Date: 20120618
  Transmission Date: 20120825
  Serious: Yes (Hospitalization)
  Sender: FDA-Public Use
  Company Number: US-BAYER-2012-061156

PATIENT
  Age: 51 Year
  Sex: Female

DRUGS (5)
  1. ASPIRIN [Concomitant]
  2. YASMIN [Suspect]
     Indication: MENOPAUSAL SYMPTOMS
  3. LISINOPRIL [Concomitant]
     Dosage: 5.5 MG, UNK
  4. YASMIN [Suspect]
     Indication: MENSTRUATION IRREGULAR
  5. WELLBUTRIN [Concomitant]
     Indication: DEPRESSION
     Dosage: 150 MG, BID

REACTIONS (1)
  - BRAIN STEM INFARCTION [None]
